FAERS Safety Report 4390637-0 (Version None)
Quarter: 2004Q2

REPORT INFORMATION
  Report Type: 
  Country: None (occurrence: None)
  Receive Date: 20040630
  Receipt Date: 20040618
  Transmission Date: 20050107
  Serious: Yes (Other)
  Sender: FDA-Public Use
  Company Number: 200411610BCC

PATIENT
  Age: 76 Year
  Sex: Female
  Weight: 72.5755 kg

DRUGS (9)
  1. ASPIRIN [Suspect]
     Indication: ISCHAEMIC HEART DISEASE PROPHYLAXIS
     Dosage: SEE IMAGE
     Route: 048
     Dates: start: 20031101, end: 20040302
  2. ASPIRIN [Suspect]
     Indication: ISCHAEMIC HEART DISEASE PROPHYLAXIS
     Dosage: SEE IMAGE
     Route: 048
     Dates: start: 20040302
  3. SEREVENT [Concomitant]
  4. ALBUTEROL [Concomitant]
  5. VASOTEC [Concomitant]
  6. TOPROL-XL [Concomitant]
  7. LANOXIN [Concomitant]
  8. LUMIGAN [Concomitant]
  9. ATIVAN [Concomitant]

REACTIONS (3)
  - DEAFNESS [None]
  - EAR INFECTION [None]
  - MENTAL DISORDER [None]
